FAERS Safety Report 5035393-8 (Version None)
Quarter: 2006Q2

REPORT INFORMATION
  Report Type: 
  Country: None (occurrence: None)
  Receive Date: 20060627
  Receipt Date: 20051117
  Transmission Date: 20061013
  Serious: Yes (Other)
  Sender: FDA-Public Use
  Company Number: JP-MERCK-0511USA03595

PATIENT
  Age: 82 Year
  Sex: Male

DRUGS (7)
  1. COZAAR [Suspect]
     Indication: HYPERTENSION
     Route: 048
     Dates: start: 20030204, end: 20051011
  2. PEPCID RPD [Concomitant]
     Route: 048
  3. ALLOPURINOL [Concomitant]
     Route: 048
  4. DILAZEP HYDROCHLORIDE [Concomitant]
     Route: 048
  5. ALFACALCIDOL [Concomitant]
     Route: 048
  6. TORSEMIDE [Concomitant]
     Route: 048
  7. [THERAPY UNSPECIFIED] [Concomitant]
     Route: 065

REACTIONS (2)
  - HYPOGLYCAEMIA [None]
  - LOSS OF CONSCIOUSNESS [None]
